FAERS Safety Report 5369387-X (Version None)
Quarter: 2007Q2

REPORT INFORMATION
  Report Type: 
  Country: None (occurrence: None)
  Receive Date: 20070625
  Receipt Date: 20070418
  Transmission Date: 20071010
  Serious: No
  Sender: FDA-Public Use
  Company Number: US-ASTRAZENECA-2007UW07551

PATIENT

DRUGS (6)
  1. CRESTOR [Suspect]
     Route: 048
  2. ANTACID TAB [Concomitant]
  3. WELLBUTRIN [Concomitant]
  4. ZYRTEC [Concomitant]
  5. FLONASE [Concomitant]
  6. PAXIL [Concomitant]

REACTIONS (1)
  - BLOOD CHOLESTEROL INCREASED [None]
